FAERS Safety Report 12238043 (Version 1)
Quarter: 2016Q2

REPORT INFORMATION
  Report Type: Spontaneous
  Country: US (occurrence: US)
  Receive Date: 20160405
  Receipt Date: 20160405
  Transmission Date: 20160815
  Serious: No
  Sender: FDA-Public Use
  Company Number: US-ACTAVIS-2015-26205

PATIENT
  Sex: Male

DRUGS (1)
  1. NICOTINE POLACRILEX [Suspect]
     Active Substance: NICOTINE
     Indication: PRODUCT USED FOR UNKNOWN INDICATION
     Dosage: 2 MG, UNKNOWN
     Route: 048

REACTIONS (4)
  - Tooth discolouration [Not Recovered/Not Resolved]
  - Sensitivity of teeth [Not Recovered/Not Resolved]
  - Toothache [Not Recovered/Not Resolved]
  - Product blister packaging issue [None]
